FAERS Safety Report 12676953 (Version 1)
Quarter: 2016Q3

REPORT INFORMATION
  Report Type: Spontaneous
  Country: US (occurrence: US)
  Receive Date: 20160823
  Receipt Date: 20160823
  Transmission Date: 20161109
  Serious: Yes (Hospitalization)
  Sender: FDA-Public Use
  Company Number: US-TEVA-601857USA

PATIENT
  Age: 61 Year
  Sex: Female

DRUGS (2)
  1. CLONIDINE. [Suspect]
     Active Substance: CLONIDINE
     Indication: HYPERTENSION
     Dosage: .3 MILLIGRAM DAILY;
     Route: 065
  2. CLONIDINE. [Suspect]
     Active Substance: CLONIDINE
     Dosage: .2 MILLIGRAM DAILY;
     Route: 065

REACTIONS (2)
  - Blood pressure increased [Unknown]
  - Drug ineffective [Unknown]

NARRATIVE: CASE EVENT DATE: 201510
